FAERS Safety Report 6010978-0 (Version None)
Quarter: 2008Q4

REPORT INFORMATION
  Report Type: 
  Country: None (occurrence: None)
  Receive Date: 20081218
  Receipt Date: 20081211
  Transmission Date: 20090506
  Serious: Yes (Other)
  Sender: FDA-Public Use
  Company Number: B0549894A

PATIENT
  Age: 68 Year
  Sex: Female

DRUGS (4)
  1. PAXIL [Suspect]
     Indication: PANIC DISORDER
     Route: 048
  2. FENTANYL-100 [Suspect]
     Route: 008
  3. SEVOFLURANE [Concomitant]
     Route: 055
  4. ROPIVACAINE [Concomitant]
     Route: 008

REACTIONS (4)
  - DEPRESSED LEVEL OF CONSCIOUSNESS [None]
  - DRUG INTERACTION [None]
  - HYPOPNOEA [None]
  - UNRESPONSIVE TO STIMULI [None]
